FAERS Safety Report 5210066-7 (Version None)
Quarter: 2006Q4

REPORT INFORMATION
  Report Type: 
  Country: None (occurrence: None)
  Receive Date: 20061103
  Receipt Date: 20060808
  Transmission Date: 20070319
  Serious: Yes (Other)
  Sender: FDA-Public Use
  Company Number: 458944

PATIENT
  Age: 50 Year
  Sex: 0
  Weight: 47.2 kg

DRUGS (2)
  1. BONIVA [Suspect]
     Indication: OSTEOPOROSIS
     Dosage: 3 MG 1PER 3 MONTH SUBCUTANEOUS
     Route: 058
     Dates: start: 20060808, end: 20060808
  2. BONIVA [Suspect]
     Indication: OSTEOPOROSIS
     Dosage: INTRAVENOUS
     Route: 042

REACTIONS (2)
  - NO ADVERSE EFFECT [None]
  - WRONG TECHNIQUE IN DRUG USAGE PROCESS [None]
